FAERS Safety Report 4566432-6 (Version None)
Quarter: 2005Q1

REPORT INFORMATION
  Report Type: 
  Country: None (occurrence: None)
  Receive Date: 20050128
  Receipt Date: 20050121
  Transmission Date: 20050727
  Serious: Yes (Hospitalization)
  Sender: FDA-Public Use
  Company Number: TPA2005A00090

PATIENT
  Age: 57 Year
  Sex: Male
  Weight: 77.1115 kg

DRUGS (8)
  1. ACTOS [Suspect]
     Indication: DIABETES MELLITUS
     Dosage: 45 MG, 1 IN 1 D, PER ORAL
     Route: 048
     Dates: start: 20010121
  2. ADVICOR (ADVICOR - SLOW RELEASE) [Concomitant]
  3. NEURONTIN [Concomitant]
  4. LOTREL (LOTREL) [Concomitant]
  5. COUMADIN [Concomitant]
  6. VALIUM [Concomitant]
  7. DILANTIN [Concomitant]
  8. LORTAB [Concomitant]

REACTIONS (1)
  - PNEUMONIA [None]
